FAERS Safety Report 17139655 (Version 1)
Quarter: 2019Q4

REPORT INFORMATION
  Report Type: Spontaneous
  Country: US (occurrence: US)
  Receive Date: 20191119
  Receipt Date: 20191119
  Transmission Date: 20200122
  Serious: No
  Sender: FDA-Public Use
  Company Number: None

PATIENT
  Age: 2 Year
  Sex: Male

DRUGS (15)
  1. FLUCONAZOLE. [Concomitant]
     Active Substance: FLUCONAZOLE
  2. FAMOTIDINE. [Concomitant]
     Active Substance: FAMOTIDINE
  3. MIRALAX [Concomitant]
     Active Substance: POLYETHYLENE GLYCOL 3350
  4. ALBUTEROL. [Concomitant]
     Active Substance: ALBUTEROL
  5. GKYOPYRROL [Concomitant]
  6. VIGABATRIN 500MG [Suspect]
     Active Substance: VIGABATRIN
     Dosage: ?          OTHER DOSE:1 PACKET (50MG);OTHER ROUTE:G-TUBE?
     Dates: start: 20180516
  7. PHENOBARB [Concomitant]
     Active Substance: PHENOBARBITAL SODIUM
  8. TYLENOL [Concomitant]
     Active Substance: ACETAMINOPHEN
  9. A-HYDROCORT [Concomitant]
     Active Substance: HYDROCORTISONE SODIUM SUCCINATE
  10. ZONISAMIDE. [Concomitant]
     Active Substance: ZONISAMIDE
  11. IBUPROFEN. [Concomitant]
     Active Substance: IBUPROFEN
  12. DIAZEPAM. [Concomitant]
     Active Substance: DIAZEPAM
  13. KEPPRA [Concomitant]
     Active Substance: LEVETIRACETAM
  14. MULTI-VIT [Concomitant]
     Active Substance: VITAMINS
  15. NYSTATIN. [Concomitant]
     Active Substance: NYSTATIN

REACTIONS (1)
  - Hospitalisation [None]
